FAERS Safety Report 6335609-1 (Version None)
Quarter: 2009Q3

REPORT INFORMATION
  Report Type: 
  Country: None (occurrence: None)
  Receive Date: 20090826
  Receipt Date: 20090821
  Transmission Date: 20100115
  Serious: Yes (Hospitalization)
  Sender: FDA-Public Use
  Company Number: 1000008373

PATIENT
  Age: 65 Year
  Sex: Female

DRUGS (1)
  1. FOSFOMYCIN (FOSFOMYCIN TROMETAMOL) (GRANULATE) [Suspect]
     Dosage: (3 GM,ONCE),ORAL
     Route: 048
     Dates: start: 20090812, end: 20090812

REACTIONS (3)
  - DERMATITIS ALLERGIC [None]
  - HYPERSENSITIVITY [None]
  - HYPOTENSION [None]
